FAERS Safety Report 22787658 (Version 22)
Quarter: 2024Q4

REPORT INFORMATION
  Report Type: Report from Study
  Country: US (occurrence: US)
  Receive Date: 20230804
  Receipt Date: 20241225
  Transmission Date: 20250115
  Serious: Yes (Hospitalization)
  Sender: TAKEDA
  Company Number: US-TAKEDA-2023TUS022815

PATIENT
  Age: 30 Year
  Sex: Female
  Weight: 50 kg

DRUGS (5)
  1. LANADELUMAB [Suspect]
     Active Substance: LANADELUMAB
     Indication: Immune system disorder
     Dosage: 300 MILLIGRAM, Q2WEEKS
     Dates: start: 20220928
  2. LANADELUMAB [Suspect]
     Active Substance: LANADELUMAB
     Dosage: 300 MILLIGRAM, Q2WEEKS
     Dates: start: 20230217
  3. LANADELUMAB [Suspect]
     Active Substance: LANADELUMAB
     Dosage: 300 MILLIGRAM, Q2WEEKS
     Dates: start: 202302
  4. FIRAZYR [Suspect]
     Active Substance: ICATIBANT ACETATE
     Indication: Immune system disorder
     Dosage: 30 MILLIGRAM
  5. FIRAZYR [Suspect]
     Active Substance: ICATIBANT ACETATE

REACTIONS (24)
  - Hereditary angioedema [Recovered/Resolved]
  - Vascular pain [Unknown]
  - Disorientation [Unknown]
  - Brain fog [Not Recovered/Not Resolved]
  - Feeling abnormal [Not Recovered/Not Resolved]
  - Blood pressure increased [Unknown]
  - Heart rate increased [Unknown]
  - Allergy to metals [Recovering/Resolving]
  - Dermatitis contact [Unknown]
  - Weight decreased [Unknown]
  - Chest pain [Unknown]
  - Swelling [Unknown]
  - Influenza like illness [Unknown]
  - Pyrexia [Unknown]
  - Pain [Unknown]
  - Injection site mass [Unknown]
  - Weight increased [Unknown]
  - Drug hypersensitivity [Unknown]
  - Pain in extremity [Unknown]
  - Drug intolerance [Unknown]
  - Smoke sensitivity [Unknown]
  - Dizziness [Unknown]
  - Injection site pain [Unknown]
  - Myalgia [Unknown]

NARRATIVE: CASE EVENT DATE: 20230228
